FAERS Safety Report 7306151-6 (Version None)
Quarter: 2011Q1

REPORT INFORMATION
  Report Type: 
  Country: None (occurrence: None)
  Receive Date: 20110209
  Receipt Date: 20110127
  Transmission Date: 20110831
  Serious: Yes (Hospitalization, Other)
  Sender: FDA-Public Use
  Company Number: 2011AP000056

PATIENT
  Age: 55 Year
  Sex: Male

DRUGS (13)
  1. METOPROLOL [Concomitant]
  2. PIPERACILLIN AND TAZOBACTAM [Concomitant]
  3. FUROSEMIDE [Concomitant]
  4. HEPARIN [Concomitant]
  5. FENTANYL [Suspect]
     Indication: POSTOPERATIVE ANALGESIA
     Dosage: 25 UG;QH;IV ; 350 UG;QH;IV
     Route: 042
  6. DOCUSATE [Concomitant]
  7. IPRATROPIUM BROMIDE [Concomitant]
  8. DILT-XR [Suspect]
     Indication: PRODUCT USED FOR UNKNOWN INDICATION
     Dosage: 15 MG;QH
  9. PROPOFOL [Suspect]
     Indication: PRODUCT USED FOR UNKNOWN INDICATION
     Dosage: 20 MG;QH
  10. CHLORPROMAZINE [Concomitant]
  11. LEVOSALBUTAMOL [Concomitant]
  12. TOBRAMYCIN [Concomitant]
  13. DIGOXIN [Concomitant]

REACTIONS (26)
  - BLOOD BICARBONATE INCREASED [None]
  - BLOOD ALBUMIN DECREASED [None]
  - MEDIASTINAL DISORDER [None]
  - MYOCLONUS [None]
  - BACK PAIN [None]
  - HAEMOGLOBIN DECREASED [None]
  - URAEMIC ENCEPHALOPATHY [None]
  - BLOOD UREA INCREASED [None]
  - PLEURAL EFFUSION [None]
  - CONFUSIONAL STATE [None]
  - BLOOD PRESSURE SYSTOLIC INCREASED [None]
  - RESPIRATORY RATE INCREASED [None]
  - PROTEIN TOTAL DECREASED [None]
  - BLOOD GLUCOSE INCREASED [None]
  - ASCITES [None]
  - WHITE BLOOD CELL COUNT INCREASED [None]
  - RENAL IMPAIRMENT [None]
  - TOXICITY TO VARIOUS AGENTS [None]
  - NEUROTOXICITY [None]
  - DELIRIUM [None]
  - DRUG INTERACTION [None]
  - BLOOD CREATININE INCREASED [None]
  - OBSTRUCTIVE UROPATHY [None]
  - NEPHROLITHIASIS [None]
  - BLOOD CALCIUM DECREASED [None]
  - CRITICAL ILLNESS POLYNEUROPATHY [None]
